FAERS Safety Report 14205001 (Version 1)
Quarter: 2017Q4

REPORT INFORMATION
  Report Type: Spontaneous
  Country: US (occurrence: US)
  Receive Date: 20171119
  Receipt Date: 20171119
  Transmission Date: 20180321
  Serious: No
  Sender: FDA-Public Use
  Company Number: None

PATIENT
  Age: 27 Year
  Sex: Male
  Weight: 94.5 kg

DRUGS (2)
  1. LORAZEPAM. [Suspect]
     Active Substance: LORAZEPAM
  2. SINGULAIR [Suspect]
     Active Substance: MONTELUKAST SODIUM

REACTIONS (9)
  - Depression [None]
  - Paranoia [None]
  - Anxiety [None]
  - Headache [None]
  - Insomnia [None]
  - Emotional disorder [None]
  - Panic attack [None]
  - Muscle twitching [None]
  - Suicidal ideation [None]
